FAERS Safety Report 5680555-X (Version None)
Quarter: 2008Q1

REPORT INFORMATION
  Report Type: 
  Country: None (occurrence: None)
  Receive Date: 20080326
  Receipt Date: 20080317
  Transmission Date: 20080703
  Serious: Yes (Hospitalization)
  Sender: FDA-Public Use
  Company Number: JP-WYE-H03077008

PATIENT
  Sex: Female

DRUGS (3)
  1. HYPEN [Suspect]
     Route: 048
     Dates: start: 20080126
  2. LIMAPROST [Concomitant]
     Dosage: UNKNOWN
     Route: 048
     Dates: start: 20050401
  3. MECOBALAMIN [Concomitant]
     Dosage: UNKNOWN
     Route: 048
     Dates: start: 20040101

REACTIONS (1)
  - ULCER HAEMORRHAGE [None]
